FAERS Safety Report 7959775-7 (Version None)
Quarter: 2011Q4

REPORT INFORMATION
  Report Type: 
  Country: None (occurrence: None)
  Receive Date: 20111206
  Receipt Date: 20111122
  Transmission Date: 20120403
  Serious: Yes (Death, Hospitalization)
  Sender: FDA-Public Use
  Company Number: JP-SANOFI-AVENTIS-2011SA076865

PATIENT
  Age: 64 Year
  Sex: Male

DRUGS (2)
  1. TS-1 [Concomitant]
     Indication: NON-SMALL CELL LUNG CANCER
     Dosage: DAILY DOSE: 120
     Dates: start: 20110909, end: 20111108
  2. DOCETAXEL [Suspect]
     Indication: NON-SMALL CELL LUNG CANCER
     Dosage: STRENGTH: 60 MG
     Route: 065
     Dates: start: 20111108, end: 20111108

REACTIONS (3)
  - INTERSTITIAL LUNG DISEASE [None]
  - C-REACTIVE PROTEIN INCREASED [None]
  - DYSPNOEA EXERTIONAL [None]
